FAERS Safety Report 23354149 (Version 1)
Quarter: 2024Q1

REPORT INFORMATION
  Report Type: Spontaneous
  Country: JP (occurrence: JP)
  Receive Date: 20240101
  Receipt Date: 20240101
  Transmission Date: 20240410
  Serious: Yes (Hospitalization, Other)
  Sender: FDA-Public Use
  Company Number: JP-KISSEI-TV20230773_P_1

PATIENT
  Age: 9 Decade
  Sex: Female

DRUGS (1)
  1. TAVNEOS [Suspect]
     Active Substance: AVACOPAN
     Indication: Microscopic polyangiitis
     Dosage: UNK
     Route: 048

REACTIONS (2)
  - Hyperbilirubinaemia [Recovered/Resolved]
  - Hepatic function abnormal [Recovered/Resolved]
